FAERS Safety Report 17292837 (Version 1)
Quarter: 2020Q1

REPORT INFORMATION
  Report Type: Report from Study
  Country: IT (occurrence: IT)
  Receive Date: 20200121
  Receipt Date: 20200121
  Transmission Date: 20200409
  Serious: Yes (Other)
  Sender: FDA-Public Use
  Company Number: IT-ACCORD-170223

PATIENT
  Age: 65 Year
  Sex: Male

DRUGS (8)
  1. RAMIPRIL. [Suspect]
     Active Substance: RAMIPRIL
     Indication: CARDIAC FAILURE
     Route: 048
     Dates: start: 20191017
  2. ATORVASTATIN [Concomitant]
     Active Substance: ATORVASTATIN
  3. AMLODIPINE [Suspect]
     Active Substance: AMLODIPINE BESYLATE
     Indication: CARDIAC FAILURE
     Route: 048
     Dates: start: 20191017, end: 20191204
  4. LASIX [Concomitant]
     Active Substance: FUROSEMIDE
     Dosage: STRENGTH-25MG
  5. TENOFOVIR [Concomitant]
     Active Substance: TENOFOVIR
  6. AMIODARONE [Concomitant]
     Active Substance: AMIODARONE
  7. XARELTO [Concomitant]
     Active Substance: RIVAROXABAN
     Dosage: STRENGTH-20MG
  8. CARDIOASPIRIN [Concomitant]
     Active Substance: ASPIRIN
     Dosage: STRENGTH-100 MG

REACTIONS (1)
  - Gravitational oedema [Recovering/Resolving]

NARRATIVE: CASE EVENT DATE: 20191128
